FAERS Safety Report 11688934 (Version 3)
Quarter: 2015Q4

REPORT INFORMATION
  Report Type: Report from Study
  Country: GB (occurrence: GB)
  Receive Date: 20151102
  Receipt Date: 20151118
  Transmission Date: 20160304
  Serious: Yes (Other)
  Sender: FDA-Public Use
  Company Number: GB-ROCHE-ITM201506IM018043

PATIENT
  Sex: Female

DRUGS (7)
  1. PREDNISOLONE. [Concomitant]
     Active Substance: PREDNISOLONE
     Indication: MYALGIA
     Route: 048
  2. IBANDRONIC ACID [Concomitant]
     Active Substance: IBANDRONIC ACID
     Route: 048
  3. ESBRIET [Suspect]
     Active Substance: PIRFENIDONE
     Indication: IDIOPATHIC PULMONARY FIBROSIS
     Route: 048
     Dates: start: 20140924, end: 201509
  4. LANSOPRAZOLE. [Concomitant]
     Active Substance: LANSOPRAZOLE
     Route: 048
  5. METOCLOPRAMIDE. [Concomitant]
     Active Substance: METOCLOPRAMIDE
     Indication: NAUSEA
     Route: 048
  6. ESBRIET [Suspect]
     Active Substance: PIRFENIDONE
     Route: 048
     Dates: start: 201509, end: 20150923
  7. ADCAL (UNITED KINGDOM) [Concomitant]
     Route: 048

REACTIONS (12)
  - Pulmonary mass [Unknown]
  - Diverticulitis [Unknown]
  - Haemorrhoids [Unknown]
  - Irritable bowel syndrome [Unknown]
  - Weight decreased [Not Recovered/Not Resolved]
  - Decreased appetite [Unknown]
  - Chest discomfort [Unknown]
  - Faecal incontinence [Unknown]
  - Diarrhoea [Recovered/Resolved]
  - Diarrhoea [Recovering/Resolving]
  - Decreased appetite [Not Recovered/Not Resolved]
  - Gastrointestinal wall thickening [Unknown]

NARRATIVE: CASE EVENT DATE: 2015
